FAERS Safety Report 9050626 (Version 2)
Quarter: 2013Q1

REPORT INFORMATION
  Report Type: Spontaneous
  Country: JP (occurrence: JP)
  Receive Date: 20130205
  Receipt Date: 20130315
  Transmission Date: 20140127
  Serious: Yes (Hospitalization)
  Sender: FDA-Public Use
  Company Number: JP-PFIZER INC-2013041380

PATIENT
  Age: 80 Year
  Sex: Female
  Weight: 49 kg

DRUGS (15)
  1. LYRICA [Suspect]
     Dosage: 25 MG, 1X/DAY
     Route: 048
     Dates: start: 20120628, end: 20121015
  2. TERIPARATIDE ACETATE [Concomitant]
     Indication: OSTEOPOROSIS
     Dosage: 56.5 UG, 1X/DAY
     Route: 058
     Dates: start: 20120927, end: 20120927
  3. TERIPARATIDE ACETATE [Concomitant]
     Dosage: 56.5 UG, 1X/DAY
     Route: 058
     Dates: start: 20121004
  4. YODEL S [Concomitant]
  5. SIMVASTATIN [Concomitant]
  6. KIPRES [Concomitant]
  7. THEOPHYLLINE [Concomitant]
  8. SEIBULE [Concomitant]
  9. BIOFERMIN [Concomitant]
  10. FAMOTIDINE D [Concomitant]
  11. ALLOZYM [Concomitant]
  12. MAGNESIUM OXIDE [Concomitant]
  13. AVAPRO [Concomitant]
  14. MEZOLMIN [Concomitant]
  15. AMBROXOL HYDROCHLORIDE [Concomitant]

REACTIONS (1)
  - Lung disorder [Not Recovered/Not Resolved]
